FAERS Safety Report 7166427-2 (Version None)
Quarter: 2010Q4

REPORT INFORMATION
  Report Type: 
  Country: None (occurrence: None)
  Receive Date: 20101203
  Receipt Date: 20101121
  Transmission Date: 20110411
  Serious: Yes (Hospitalization)
  Sender: FDA-Public Use
  Company Number: 10-514

PATIENT
  Age: 30 Year
  Sex: Male

DRUGS (3)
  1. IBUPROFEN [Suspect]
     Indication: ARTHRALGIA
  2. INSULIN [Concomitant]
  3. POTASSIUM [Concomitant]

REACTIONS (2)
  - HYPERKALAEMIA [None]
  - HYPERTENSION [None]
